FAERS Safety Report 9999728 (Version 1)
Quarter: 2014Q1

REPORT INFORMATION
  Report Type: Spontaneous
  Country: US (occurrence: None)
  Receive Date: 20140228
  Receipt Date: 20140228
  Transmission Date: 20141002
  Serious: Yes (Other)
  Sender: FDA-Public Use
  Company Number: PHEH2013US010177

PATIENT
  Age: 62 Year
  Sex: Male

DRUGS (8)
  1. NEORAL [Suspect]
     Dosage: SIX TIMES DAILY
  2. CLONIDINE [Concomitant]
  3. ASPIRIN (ACETYLSALICYLIC ACID) [Concomitant]
  4. LIPITOR (ATORVASTATIN CALCIUM) [Concomitant]
  5. LOSARTIN (LOSARTAN POTASSIUM) [Concomitant]
  6. HYDRAZINE [Concomitant]
  7. ATENOLOL [Concomitant]
  8. CICLOSPORIN [Suspect]

REACTIONS (2)
  - Renal failure [None]
  - Infection [None]
